FAERS Safety Report 17240707 (Version 1)
Quarter: 2020Q1

REPORT INFORMATION
  Report Type: Spontaneous
  Country: GB (occurrence: GB)
  Receive Date: 20200107
  Receipt Date: 20200107
  Transmission Date: 20200409
  Serious: Yes (Other)
  Sender: FDA-Public Use
  Company Number: GB-TEVA-2019-GB-1162325

PATIENT
  Age: 42 Year
  Sex: Male
  Weight: 92 kg

DRUGS (5)
  1. ATOMOXETINE. [Suspect]
     Active Substance: ATOMOXETINE HYDROCHLORIDE
     Indication: ATTENTION DEFICIT/HYPERACTIVITY DISORDER
     Dosage: 40 MG
     Route: 048
     Dates: start: 20191019, end: 20191103
  2. OMEPRAZOLE. [Concomitant]
     Active Substance: OMEPRAZOLE
  3. FENTANYL. [Concomitant]
     Active Substance: FENTANYL
  4. PARACETAMOL [Concomitant]
     Active Substance: ACETAMINOPHEN
  5. DICLOFENAC SODIUM. [Concomitant]
     Active Substance: DICLOFENAC SODIUM

REACTIONS (9)
  - Poor peripheral circulation [Recovered/Resolved]
  - Hyperhidrosis [Recovered/Resolved]
  - Prostatitis [Not Recovered/Not Resolved]
  - Pollakiuria [Recovering/Resolving]
  - Heart rate increased [Recovered/Resolved]
  - Palpitations [Recovered/Resolved]
  - Heart rate irregular [Recovered/Resolved]
  - Sexual dysfunction [Recovering/Resolving]
  - Dysphagia [Recovered/Resolved]

NARRATIVE: CASE EVENT DATE: 20191019
